FAERS Safety Report 5483101-9 (Version None)
Quarter: 2007Q4

REPORT INFORMATION
  Report Type: 
  Country: None (occurrence: None)
  Receive Date: 20071009
  Receipt Date: 20070928
  Transmission Date: 20080405
  Serious: Yes (Hospitalization, Disabling)
  Sender: FDA-Public Use
  Company Number: 237961K07USA

PATIENT
  Age: 47 Year
  Sex: Female
  Weight: 143.3367 kg

DRUGS (10)
  1. REBIF [Suspect]
     Indication: MULTIPLE SCLEROSIS
     Dosage: 44 MCG, 3 IN 1 WEEKS, SUBCUTANEOUS
     Route: 058
     Dates: start: 20060902
  2. ACTOS [Concomitant]
  3. METAGLIP (METAGLIP) [Concomitant]
  4. TOPROL-XL [Concomitant]
  5. FLONASE [Concomitant]
  6. NEURONTIN [Concomitant]
  7. AVAPRO [Concomitant]
  8. PROTONIX [Concomitant]
  9. CLARITIN [Concomitant]
  10. TRIAMTERENE AND HYDROCHLOROTHIAZIDE (DYAZIDE) [Concomitant]

REACTIONS (2)
  - PULMONARY EMBOLISM [None]
  - THROMBOSIS [None]
